FAERS Safety Report 5595093-2 (Version None)
Quarter: 2008Q1

REPORT INFORMATION
  Report Type: 
  Country: None (occurrence: None)
  Receive Date: 20080117
  Receipt Date: 20080109
  Transmission Date: 20080703
  Serious: Yes (Other)
  Sender: FDA-Public Use
  Company Number: JP-TYCO HEALTHCARE/MALLINCKRODT-T200701598

PATIENT

DRUGS (3)
  1. LIQUID BAROSPERSE [Suspect]
     Indication: BARIUM SWALLOW
     Route: 048
     Dates: start: 19920113, end: 19920113
  2. STOOL SOFTENER [Concomitant]
     Indication: CONSTIPATION PROPHYLAXIS
     Dates: start: 19920113
  3. ENEMAS [Concomitant]
     Indication: CONSTIPATION PROPHYLAXIS
     Dates: start: 19920113

REACTIONS (1)
  - ILEUS [None]
